FAERS Safety Report 5649713-4 (Version None)
Quarter: 2008Q1

REPORT INFORMATION
  Report Type: 
  Country: None (occurrence: None)
  Receive Date: 20080131
  Receipt Date: 20071113
  Transmission Date: 20080703
  Serious: No
  Sender: FDA-Public Use
  Company Number: US200711003171

PATIENT
  Age: 85 Year
  Sex: Female
  Weight: 63.5 kg

DRUGS (2)
  1. BYETTA [Suspect]
     Dosage: 5 UG, OTHER, SUBCUTANEOUS; 5 UG, OTHER, SUBCUTANEOUS
     Route: 058
     Dates: start: 20071108, end: 20071108
  2. BYETTA [Suspect]
     Dosage: 5 UG, OTHER, SUBCUTANEOUS; 5 UG, OTHER, SUBCUTANEOUS
     Route: 058
     Dates: start: 20071112, end: 20071112

REACTIONS (5)
  - ASTHENIA [None]
  - DECREASED APPETITE [None]
  - FATIGUE [None]
  - NASAL CONGESTION [None]
  - VOMITING [None]
